FAERS Safety Report 12903179 (Version 1)
Quarter: 2016Q4

REPORT INFORMATION
  Report Type: Report from Study
  Country: GB (occurrence: GB)
  Receive Date: 20161102
  Receipt Date: 20161102
  Transmission Date: 20170207
  Serious: Yes (Other)
  Sender: FDA-Public Use
  Company Number: GB-TEVA-2014-003579

PATIENT
  Sex: Female

DRUGS (1)
  1. ACTONEL [Suspect]
     Active Substance: RISEDRONATE SODIUM
     Indication: PROPHYLAXIS
     Route: 048

REACTIONS (16)
  - Essential hypertension [Unknown]
  - Hot flush [Unknown]
  - Cataract [Unknown]
  - Arthritis [Unknown]
  - Cystitis [Unknown]
  - Angina pectoris [Unknown]
  - Arthralgia [Unknown]
  - Alopecia [Unknown]
  - Abdominal pain [Unknown]
  - Back pain [Unknown]
  - Abdominal distension [Unknown]
  - Dyspepsia [Unknown]
  - Amnesia [Unknown]
  - Balance disorder [Unknown]
  - Emotional disorder [Unknown]
  - Reproductive tract disorder [Unknown]
